FAERS Safety Report 10844421 (Version 2)
Quarter: 2015Q1

REPORT INFORMATION
  Report Type: Spontaneous
  Country: JP (occurrence: JP)
  Receive Date: 20150220
  Receipt Date: 20150305
  Transmission Date: 20150721
  Serious: Yes (Death, Other)
  Sender: FDA-Public Use
  Company Number: JP-UCBSA-2015004816

PATIENT
  Age: 7 Month
  Sex: Female

DRUGS (11)
  1. XYZAL [Suspect]
     Active Substance: LEVOCETIRIZINE DIHYDROCHLORIDE
     Indication: RHINITIS ALLERGIC
     Dosage: UNKNOWN DAYS, SYRUP
     Dates: start: 20150105, end: 201501
  2. MUCOSOLVAN [Suspect]
     Active Substance: AMBROXOL\CLENBUTEROL
     Indication: ASTHMA
     Dosage: 2 ML, ONCE DAILY (QD)
     Route: 048
     Dates: start: 20150203, end: 20150204
  3. XYZAL [Suspect]
     Active Substance: LEVOCETIRIZINE DIHYDROCHLORIDE
     Dosage: 2.5 ML, ONCE DAILY (QD), SYRUP
     Route: 048
     Dates: start: 20150203, end: 20150204
  4. MUCODYNE [Suspect]
     Active Substance: CARBOCYSTEINE
     Dosage: 4.8 ML, ONCE DAILY (QD)
     Route: 048
     Dates: start: 20150203, end: 20150204
  5. SAWACILLIN [Suspect]
     Active Substance: AMOXICILLIN
     Indication: PHARYNGITIS
     Dosage: UNK
     Dates: start: 20150105, end: 201501
  6. ASVERIN (TIPEPIDINE HIBENZATE) [Suspect]
     Active Substance: TIPEPIDINE HIBENZATE
     Indication: ASTHMA
     Dosage: UNKNOWN DOSE
     Dates: start: 20150105, end: 201501
  7. MUCODYNE [Suspect]
     Active Substance: CARBOCYSTEINE
     Indication: ASTHMA
     Dosage: UNKNOWN DOSE
     Dates: start: 20150105, end: 201501
  8. ONON [Suspect]
     Active Substance: PRANLUKAST
     Indication: ASTHMA
     Dosage: 60 MG, ONCE DAILY (QD)
     Route: 048
     Dates: start: 20150203, end: 20150204
  9. ASVERIN (TIPEPIDINE HIBENZATE) [Suspect]
     Active Substance: TIPEPIDINE HIBENZATE
     Dosage: 2 ML, ONCE DAILY (QD)
     Route: 048
     Dates: start: 20150203, end: 20150204
  10. SAWACILLIN [Suspect]
     Active Substance: AMOXICILLIN
     Dosage: 300 MG, ONCE DAILY (QD)
     Route: 048
     Dates: start: 20150203, end: 20150204
  11. MEPTIN [Suspect]
     Active Substance: PROCATEROL HYDROCHLORIDE
     Indication: ASTHMA
     Dosage: 3 ML, ONCE DAILY (QD)
     Route: 048
     Dates: start: 20150203, end: 20150204

REACTIONS (2)
  - Cardiac arrest [Fatal]
  - Sudden infant death syndrome [Fatal]

NARRATIVE: CASE EVENT DATE: 20150205
